FAERS Safety Report 4664041-1 (Version None)
Quarter: 2005Q2

REPORT INFORMATION
  Report Type: 
  Country: None (occurrence: None)
  Receive Date: 20050510
  Receipt Date: 20050426
  Transmission Date: 20051028
  Serious: Yes (Other)
  Sender: FDA-Public Use
  Company Number: HQWYE379027APR05

PATIENT
  Age: 30 Year
  Sex: Female

DRUGS (1)
  1. REFACTO [Suspect]
     Indication: FACTOR VIII DEFICIENCY
     Dosage: SEE IMAGE
     Route: 040

REACTIONS (3)
  - CAESAREAN SECTION [None]
  - DEEP VEIN THROMBOSIS [None]
  - DRUG EXPOSURE DURING PREGNANCY [None]
